FAERS Safety Report 8604682-X (Version None)
Quarter: 2012Q3

REPORT INFORMATION
  Report Type: 
  Country: None (occurrence: None)
  Receive Date: 20120808
  Receipt Date: 20120808
  Transmission Date: 20120928
  Serious: No
  Sender: FDA-Public Use
  Company Number: None

PATIENT
  Age: 56 Year
  Sex: Female
  Weight: 52.6173 kg

DRUGS (1)
  1. LYRICA [Suspect]
     Indication: FIBROMYALGIA
     Dosage: 75MG. TID PO
     Route: 048
     Dates: start: 20120608, end: 20120614

REACTIONS (5)
  - EYE MOVEMENT DISORDER [None]
  - HALLUCINATION [None]
  - TREMOR [None]
  - DYSKINESIA [None]
  - EXCESSIVE EYE BLINKING [None]
